FAERS Safety Report 6220886-8 (Version None)
Quarter: 2009Q2

REPORT INFORMATION
  Report Type: 
  Country: None (occurrence: None)
  Receive Date: 20090610
  Receipt Date: 20090529
  Transmission Date: 20091009
  Serious: Yes (Other)
  Sender: FDA-Public Use
  Company Number: DE-CELGENEUS-062-20484-09060102

PATIENT
  Sex: Male
  Weight: 104 kg

DRUGS (2)
  1. INNOHEP [Suspect]
     Indication: DRUG USE FOR UNKNOWN INDICATION
     Route: 058
  2. MARCUMAR [Concomitant]
     Indication: DRUG USE FOR UNKNOWN INDICATION
     Route: 065

REACTIONS (4)
  - CHILLS [None]
  - CYSTITIS [None]
  - INJECTION SITE ERYTHEMA [None]
  - INJECTION SITE NECROSIS [None]
